FAERS Safety Report 4480833-6 (Version None)
Quarter: 2004Q4

REPORT INFORMATION
  Report Type: 
  Country: None (occurrence: None)
  Receive Date: 20041021
  Receipt Date: 20041013
  Transmission Date: 20050328
  Serious: Yes (Other)
  Sender: FDA-Public Use
  Company Number: FR-ABBOTT-04P-056-0277363-00

PATIENT
  Age: 14 Year
  Sex: Male

DRUGS (1)
  1. DEPAKINE CHRONO TABLETS [Suspect]
     Indication: DRUG USE FOR UNKNOWN INDICATION
     Dosage: 500 AM/1000 PM
     Route: 048
     Dates: start: 20040801

REACTIONS (3)
  - BLOOD CREATINE PHOSPHOKINASE INCREASED [None]
  - MUSCLE FATIGUE [None]
  - MYALGIA [None]
